FAERS Safety Report 24136451 (Version 2)
Quarter: 2024Q3

REPORT INFORMATION
  Report Type: Spontaneous
  Country: US (occurrence: US)
  Receive Date: 20240725
  Receipt Date: 20240801
  Transmission Date: 20241017
  Serious: Yes (Hospitalization, Other)
  Sender: RANBAXY
  Company Number: US-SUN PHARMACEUTICAL INDUSTRIES LTD-2024R1-458480

PATIENT
  Age: 66 Year
  Sex: Male

DRUGS (1)
  1. NALTREXONE [Suspect]
     Active Substance: NALTREXONE
     Indication: Pain
     Dosage: 1 MILLIGRAM
     Route: 065

REACTIONS (4)
  - Drug withdrawal syndrome [Unknown]
  - Lactic acidosis [Unknown]
  - Akathisia [Unknown]
  - Psychomotor hyperactivity [Unknown]
